FAERS Safety Report 7071628-8 (Version None)
Quarter: 2010Q4

REPORT INFORMATION
  Report Type: 
  Country: None (occurrence: None)
  Receive Date: 20101029
  Receipt Date: 20090930
  Transmission Date: 20110411
  Serious: No
  Sender: FDA-Public Use
  Company Number: A0809752A

PATIENT
  Age: 71 Year
  Sex: Male

DRUGS (8)
  1. ADVAIR DISKUS 100/50 [Suspect]
     Indication: ASTHMA
     Dosage: 1PUFF TWICE PER DAY
     Route: 055
     Dates: start: 20010101
  2. LEVAQUIN [Suspect]
     Indication: SINUSITIS
     Dosage: 1TAB PER DAY
     Route: 048
     Dates: start: 20090604, end: 20090610
  3. SINGULAIR [Concomitant]
  4. ALBUTEROL [Concomitant]
  5. DOXAZOSIN MESYLATE [Concomitant]
  6. AVODART [Concomitant]
  7. FOSAMAX [Concomitant]
  8. CALCIUM [Concomitant]

REACTIONS (7)
  - ARTHRALGIA [None]
  - CANDIDIASIS [None]
  - DRUG INTERACTION [None]
  - MENISCUS LESION [None]
  - MUSCLE SPASMS [None]
  - PAIN IN EXTREMITY [None]
  - TENDONITIS [None]
